FAERS Safety Report 8412122-9 (Version None)
Quarter: 2012Q2

REPORT INFORMATION
  Report Type: 
  Country: None (occurrence: None)
  Receive Date: 20120605
  Receipt Date: 20120509
  Transmission Date: 20120825
  Serious: No
  Sender: FDA-Public Use
  Company Number: US-AMGEN-USASP2012017720

PATIENT
  Age: 46 Year
  Sex: Female

DRUGS (1)
  1. ENBREL [Suspect]
     Indication: RHEUMATOID ARTHRITIS
     Dosage: 50 MG, QWK
     Dates: start: 20120309

REACTIONS (7)
  - MUSCULOSKELETAL STIFFNESS [None]
  - PAIN [None]
  - SINUS HEADACHE [None]
  - HEADACHE [None]
  - ARTHRALGIA [None]
  - SINUS CONGESTION [None]
  - INJECTION SITE PAIN [None]
